FAERS Safety Report 23245302 (Version 1)
Quarter: 2023Q4

REPORT INFORMATION
  Report Type: Report from Study
  Country: AU (occurrence: None)
  Receive Date: 20231130
  Receipt Date: 20231130
  Transmission Date: 20240109
  Serious: Yes (Hospitalization)
  Sender: FDA-Public Use
  Company Number: AU-ROCHE-2548458

PATIENT
  Age: 70 Year
  Sex: Male
  Weight: 77 kg

DRUGS (38)
  1. GLOFITAMAB [Suspect]
     Active Substance: GLOFITAMAB
     Indication: B-cell lymphoma
     Dosage: DATE OF MOST RECENT DOSE OF RO7082859 PRIOR TO AE ONSET: 08/JAN/2020 (TIME: 12:00 AM) 16 MG
     Route: 042
     Dates: start: 20191022
  2. OBINUTUZUMAB [Suspect]
     Active Substance: OBINUTUZUMAB
     Indication: B-cell lymphoma
     Dosage: START DATE OF MOST RECENT DOSE OF STUDY DRUG PRIOR TO SAE: 16/OCT/2019 (12:24 PM).?END DATE OF MOST
     Route: 042
     Dates: start: 20191016
  3. VALACYCLOVIR HYDROCHLORIDE [Concomitant]
     Active Substance: VALACYCLOVIR HYDROCHLORIDE
  4. ALTEPLASE [Concomitant]
     Active Substance: ALTEPLASE
     Dates: start: 20191108, end: 20191108
  5. SERTRALINE [Concomitant]
     Active Substance: SERTRALINE HYDROCHLORIDE
  6. ALLOPURINOL [Concomitant]
     Active Substance: ALLOPURINOL
     Indication: Gout
  7. ENOXAPARIN [Concomitant]
     Active Substance: ENOXAPARIN
     Dates: start: 20191024, end: 20191026
  8. PANTOPRAZOLE [Concomitant]
     Active Substance: PANTOPRAZOLE
     Dates: start: 20191024
  9. ONDANSETRON [Concomitant]
     Active Substance: ONDANSETRON
     Dates: start: 20191106, end: 20191107
  10. DEXAMETHASONE [Concomitant]
     Active Substance: DEXAMETHASONE
     Indication: Cytokine release syndrome
     Route: 042
     Dates: start: 20191022
  11. DEXAMETHASONE [Concomitant]
     Active Substance: DEXAMETHASONE
     Route: 042
     Dates: start: 20191106
  12. DEXAMETHASONE [Concomitant]
     Active Substance: DEXAMETHASONE
     Route: 042
     Dates: start: 20191127
  13. DEXAMETHASONE [Concomitant]
     Active Substance: DEXAMETHASONE
     Route: 042
     Dates: start: 20200108
  14. DEXAMETHASONE [Concomitant]
     Active Substance: DEXAMETHASONE
     Route: 042
     Dates: start: 20191029
  15. DEXAMETHASONE [Concomitant]
     Active Substance: DEXAMETHASONE
     Route: 042
     Dates: start: 20191218
  16. DEXAMETHASONE [Concomitant]
     Active Substance: DEXAMETHASONE
     Route: 048
     Dates: start: 20191026, end: 20201026
  17. ACETAMINOPHEN [Concomitant]
     Active Substance: ACETAMINOPHEN
     Route: 035
     Dates: start: 20191106
  18. ACETAMINOPHEN [Concomitant]
     Active Substance: ACETAMINOPHEN
     Route: 048
     Dates: start: 20191127
  19. ACETAMINOPHEN [Concomitant]
     Active Substance: ACETAMINOPHEN
     Route: 048
     Dates: start: 20200108
  20. ACETAMINOPHEN [Concomitant]
     Active Substance: ACETAMINOPHEN
     Route: 048
     Dates: start: 20191029
  21. ACETAMINOPHEN [Concomitant]
     Active Substance: ACETAMINOPHEN
     Route: 048
     Dates: start: 20191218
  22. ACETAMINOPHEN [Concomitant]
     Active Substance: ACETAMINOPHEN
     Route: 048
     Dates: start: 20191016
  23. ACETAMINOPHEN [Concomitant]
     Active Substance: ACETAMINOPHEN
     Route: 048
     Dates: start: 20191022
  24. ACETAMINOPHEN [Concomitant]
     Active Substance: ACETAMINOPHEN
     Route: 048
     Dates: start: 20200219
  25. LORATADINE [Concomitant]
     Active Substance: LORATADINE
     Route: 048
     Dates: start: 20191016
  26. LORATADINE [Concomitant]
     Active Substance: LORATADINE
     Route: 048
     Dates: start: 20191106
  27. LORATADINE [Concomitant]
     Active Substance: LORATADINE
     Route: 048
     Dates: start: 20191127
  28. LORATADINE [Concomitant]
     Active Substance: LORATADINE
     Route: 048
     Dates: start: 20200108
  29. LORATADINE [Concomitant]
     Active Substance: LORATADINE
     Route: 048
     Dates: start: 20191218
  30. LORATADINE [Concomitant]
     Active Substance: LORATADINE
     Route: 048
     Dates: start: 20191029
  31. LORATADINE [Concomitant]
     Active Substance: LORATADINE
     Route: 048
     Dates: start: 20191022
  32. LOPERAMIDE [Concomitant]
     Active Substance: LOPERAMIDE
     Indication: Diarrhoea
     Dates: start: 20200119
  33. ONDANSETRON [Concomitant]
     Active Substance: ONDANSETRON
     Route: 048
     Dates: start: 20200219, end: 20200219
  34. PREDNISOLONE [Concomitant]
     Active Substance: PREDNISOLONE
     Indication: Enterocolitis
     Route: 048
     Dates: start: 20200216, end: 20200219
  35. PREDNISOLONE [Concomitant]
     Active Substance: PREDNISOLONE
     Route: 048
     Dates: start: 20200220, end: 20200412
  36. POTASSIUM [Concomitant]
     Active Substance: POTASSIUM
     Indication: Hypokalaemia
     Route: 048
     Dates: start: 20200211, end: 20200304
  37. MAGNESIUM [Concomitant]
     Active Substance: MAGNESIUM
     Indication: Hypomagnesaemia
     Route: 048
     Dates: start: 20200208, end: 20200304
  38. BACTRIM [Concomitant]
     Active Substance: SULFAMETHOXAZOLE\TRIMETHOPRIM
     Dates: start: 20200207

REACTIONS (2)
  - Enterocolitis [Recovered/Resolved]
  - Nephrolithiasis [Recovered/Resolved]

NARRATIVE: CASE EVENT DATE: 20200109
